FAERS Safety Report 9980216 (Version 1)
Quarter: 2014Q1

REPORT INFORMATION
  Report Type: Report from Study
  Country: US (occurrence: US)
  Receive Date: 20140307
  Receipt Date: 20140307
  Transmission Date: 20141002
  Serious: No
  Sender: FDA-Public Use
  Company Number: US-ABBVIE-13P-163-1175177-00

PATIENT
  Age: 61 Year
  Sex: Male

DRUGS (6)
  1. HUMIRA [Suspect]
     Indication: RHEUMATOID ARTHRITIS
     Dates: start: 201211, end: 201307
  2. HUMIRA [Suspect]
  3. BLOOD PRESSURE MEDICINE [Concomitant]
     Indication: BLOOD PRESSURE
  4. CHOLESTROL MEDICINE [Concomitant]
     Indication: BLOOD CHOLESTEROL
  5. STOMACH MEDICINE [Concomitant]
     Indication: GASTRIC DISORDER
  6. GOUT MEDICINE [Concomitant]
     Indication: GOUT

REACTIONS (3)
  - Joint dislocation [Recovered/Resolved]
  - Toothache [Recovered/Resolved]
  - Toothache [Recovered/Resolved]
